FAERS Safety Report 10258096 (Version 1)
Quarter: 2014Q2

REPORT INFORMATION
  Report Type: Spontaneous
  Country: US (occurrence: None)
  Receive Date: 20140623
  Receipt Date: 20140623
  Transmission Date: 20141212
  Serious: Yes (Other)
  Sender: FDA-Public Use
  Company Number: UNT-2014-000554

PATIENT
  Age: 62 Year
  Sex: Male
  Weight: 99.3 kg

DRUGS (3)
  1. REMODULIN (TREPROSTINIL SODIUM) INJECTION, 5MG/ML [Suspect]
     Indication: COR PULMONALE CHRONIC
     Dates: start: 20140211
  2. REVATIO (SILDENAFIL CITRATE) [Concomitant]
  3. LETAIRIS (AMBRISENTAN) [Concomitant]

REACTIONS (2)
  - Cardiomyopathy [None]
  - Ventricular tachycardia [None]
